FAERS Safety Report 8155477-5 (Version None)
Quarter: 2012Q1

REPORT INFORMATION
  Report Type: 
  Country: None (occurrence: None)
  Receive Date: 20120222
  Receipt Date: 20120210
  Transmission Date: 20120608
  Serious: Yes (Hospitalization)
  Sender: FDA-Public Use
  Company Number: CA-ELI_LILLY_AND_COMPANY-CA201110000848

PATIENT
  Sex: Female

DRUGS (1)
  1. EVISTA [Suspect]
     Indication: PROPHYLAXIS
     Dosage: 60 MG, QD
     Dates: start: 20020101, end: 20110926

REACTIONS (3)
  - TIBIA FRACTURE [None]
  - SLEEP DISORDER [None]
  - MUSCLE SPASMS [None]
